FAERS Safety Report 8975005 (Version 2)
Quarter: 2013Q1

REPORT INFORMATION
  Report Type: Report from Study
  Country: JP (occurrence: JP)
  Receive Date: 20121219
  Receipt Date: 20130122
  Transmission Date: 20140127
  Serious: Yes (Death, Hospitalization, Other)
  Sender: FDA-Public Use
  Company Number: PHHY2012JP109093

PATIENT
  Age: 83 Year
  Sex: Female
  Weight: 40 kg

DRUGS (8)
  1. EXELON PATCH [Suspect]
     Indication: DEMENTIA ALZHEIMER^S TYPE
     Dosage: 4.5 MG DAILY
     Route: 062
     Dates: start: 20120706
  2. CEPHADOL [Concomitant]
     Indication: MENIERE^S DISEASE
     Dosage: 75 MG, UNK
     Route: 048
  3. SIGMART [Concomitant]
     Indication: ANGINA PECTORIS
     Dosage: 15 MG, UNK
     Route: 048
  4. PROMAC                                  /JPN/ [Concomitant]
     Indication: GASTRIC ULCER
     Dosage: 150 MG, UNK
     Route: 048
  5. FUROSEMIDE [Concomitant]
     Indication: HYPERTENSION
     Dosage: 20 MG, UNK
     Route: 048
  6. WARFARIN [Concomitant]
     Indication: CEREBRAL INFARCTION
     Dosage: 1 MG, UNK
     Route: 048
  7. PARIET [Concomitant]
     Indication: GASTRIC ULCER
     Dosage: 10 MG, UNK
     Route: 048
  8. ACTONEL [Concomitant]
     Indication: OSTEOPOROSIS
     Dosage: 17.5 MG, UNK
     Route: 048

REACTIONS (8)
  - Renal failure acute [Fatal]
  - Respiratory failure [Unknown]
  - Respiratory rate decreased [Unknown]
  - Depressed level of consciousness [Unknown]
  - Cardiac failure [Unknown]
  - Feeling cold [Unknown]
  - Vomiting [Unknown]
  - Dehydration [Unknown]
